FAERS Safety Report 4742063-X (Version None)
Quarter: 2005Q3

REPORT INFORMATION
  Report Type: 
  Country: None (occurrence: None)
  Receive Date: 20050810
  Receipt Date: 20050805
  Transmission Date: 20060218
  Serious: Yes (Congenital Anomaly, Other)
  Sender: FDA-Public Use
  Company Number: 005374

PATIENT
  Sex: Female
  Weight: 2 kg

DRUGS (6)
  1. DIDANOSINE [Suspect]
     Indication: HIV INFECTION
     Dosage: 400.00 MG, QD, TRANSPLACENTAL
     Route: 064
     Dates: start: 20040928, end: 20050209
  2. ATAZAN (ATAZANAVIR) [Suspect]
     Dosage: 300.00 MG, QD, TRANSPLACENTAL
     Route: 064
     Dates: start: 20030923
  3. RITONAVIR (RITONAVIR) [Suspect]
     Dosage: 100.00 MG, QD, TRANSPLACENTAL
     Route: 064
     Dates: start: 20030923
  4. LAMIVUDINE [Suspect]
     Dosage: 300.00 MG, QD, TRANSPLACENTAL
     Route: 064
     Dates: start: 20040323
  5. TENOFOVIR (TENOFOVIR) [Suspect]
     Dosage: 300.00 MG, QD, TRANSPLACENTAL
     Dates: start: 20050209
  6. ZIDOVUDINE [Suspect]
     Dosage: 1676.00 MG,   TRANSPLACENTAL
     Route: 064
     Dates: start: 20050802, end: 20050803

REACTIONS (5)
  - BRADYCARDIA FOETAL [None]
  - CAESAREAN SECTION [None]
  - DRUG EXPOSURE DURING PREGNANCY [None]
  - FOETAL GROWTH RETARDATION [None]
  - PREMATURE BABY [None]
